FAERS Safety Report 8230630-0 (Version None)
Quarter: 2012Q1

REPORT INFORMATION
  Report Type: 
  Country: None (occurrence: None)
  Receive Date: 20120323
  Receipt Date: 20120315
  Transmission Date: 20120608
  Serious: Yes (Other)
  Sender: FDA-Public Use
  Company Number: CH-JNJFOC-20120307718

PATIENT
  Sex: Male

DRUGS (2)
  1. ALCOHOL [Suspect]
     Indication: PRODUCT USED FOR UNKNOWN INDICATION
     Route: 065
  2. XEPLION [Suspect]
     Indication: SCHIZOPHRENIA
     Route: 065
     Dates: start: 20120210

REACTIONS (3)
  - SCHIZOPHRENIA [None]
  - ALCOHOL POISONING [None]
  - HYPOKALAEMIA [None]
